FAERS Safety Report 25082699 (Version 4)
Quarter: 2025Q2

REPORT INFORMATION
  Report Type: Spontaneous
  Country: US (occurrence: US)
  Receive Date: 20250317
  Receipt Date: 20250503
  Transmission Date: 20250716
  Serious: Yes (Hospitalization, Other)
  Sender: GLENMARK
  Company Number: US-GLENMARK PHARMACEUTICALS-2025GMK098643

PATIENT

DRUGS (2)
  1. CARVEDILOL [Suspect]
     Active Substance: CARVEDILOL
     Indication: Blood pressure abnormal
     Route: 048
     Dates: start: 2016
  2. CARVEDILOL [Suspect]
     Active Substance: CARVEDILOL
     Route: 048
     Dates: start: 202505

REACTIONS (5)
  - Angina pectoris [Unknown]
  - Hypertension [Unknown]
  - Drug ineffective [Unknown]
  - Suspected product quality issue [Unknown]
  - Recalled product administered [Unknown]
